FAERS Safety Report 21402245 (Version 4)
Quarter: 2023Q2

REPORT INFORMATION
  Report Type: Spontaneous
  Country: US (occurrence: US)
  Receive Date: 20221003
  Receipt Date: 20230627
  Transmission Date: 20230722
  Serious: Yes (Other)
  Sender: FDA-Public Use
  Company Number: US-TAKEDA-2022TUS069050

PATIENT
  Sex: Female
  Weight: 67 kg

DRUGS (10)
  1. LIVTENCITY [Suspect]
     Active Substance: MARIBAVIR
     Indication: Cytomegalovirus infection
     Dosage: 2 DOSAGE FORM, BID
     Route: 065
     Dates: start: 202206
  2. LIVTENCITY [Suspect]
     Active Substance: MARIBAVIR
     Dosage: 400 MILLIGRAM, Q12H
     Route: 065
  3. LIVTENCITY [Suspect]
     Active Substance: MARIBAVIR
     Dosage: 800 MILLIGRAM
     Route: 065
     Dates: start: 20230617
  4. ZARXIO [Concomitant]
     Active Substance: FILGRASTIM-SNDZ
     Dosage: UNK, 1/WEEK
     Route: 048
  5. ZINC [Concomitant]
     Active Substance: ZINC
     Dosage: UNK
     Route: 048
  6. VITAMIN C [Concomitant]
     Active Substance: ASCORBIC ACID
     Dosage: UNK
     Route: 048
  7. LEVOTHYROXINE [Concomitant]
     Active Substance: LEVOTHYROXINE
     Dosage: 200 MICROGRAM, QD
     Route: 048
  8. FAMOTIDINE [Concomitant]
     Active Substance: FAMOTIDINE
     Dosage: 20 MILLIGRAM, QD
     Route: 048
  9. TACROLIMUS [Concomitant]
     Active Substance: TACROLIMUS
     Dosage: 3 DOSAGE FORM, QD
     Route: 048
  10. PREVNAR [Concomitant]
     Active Substance: PNEUMOCOCCAL 7-VALENT CONJUGATE VACCINE (DIPHTHERIA CRM197 PROTEIN)
     Dosage: UNK
     Route: 030

REACTIONS (7)
  - Cellulitis [Unknown]
  - Non-Hodgkin^s lymphoma [Unknown]
  - Onychomalacia [Unknown]
  - Onychoclasis [Unknown]
  - Frequent bowel movements [Unknown]
  - Dizziness [Unknown]
  - Gastric disorder [Unknown]
